FAERS Safety Report 9826321 (Version 1)
Quarter: 2013Q4

REPORT INFORMATION
  Report Type: Spontaneous
  Country: US (occurrence: None)
  Receive Date: 20131223
  Receipt Date: 20131223
  Transmission Date: 20140711
  Serious: Yes (Other)
  Sender: FDA-Public Use
  Company Number: 221467LEO

PATIENT
  Age: 68 Year
  Sex: Female

DRUGS (2)
  1. PICATO GEL [Suspect]
     Indication: ACTINIC KERATOSIS
     Dosage: 1 IN 1 D, TOPICAL
     Route: 061
     Dates: start: 20130420
  2. PICATO [Suspect]
     Indication: ACTINIC KERATOSIS
     Route: 061
     Dates: start: 20130420, end: 20130421

REACTIONS (7)
  - Application site haemorrhage [None]
  - Application site pain [None]
  - Application site pruritus [None]
  - Application site exfoliation [None]
  - Incorrect drug administration duration [None]
  - Drug administration error [None]
  - Inappropriate schedule of drug administration [None]
